FAERS Safety Report 8193071-0 (Version None)
Quarter: 2012Q1

REPORT INFORMATION
  Report Type: 
  Country: None (occurrence: None)
  Receive Date: 20120221
  Receipt Date: 20120123
  Transmission Date: 20120608
  Serious: Yes (Other)
  Sender: FDA-Public Use
  Company Number: 2012-000053

PATIENT
  Age: 38 Year
  Sex: Female

DRUGS (1)
  1. LO LOESTRIN FE [Suspect]
     Dosage: 10/1000, ORAL
     Route: 048

REACTIONS (3)
  - CONFUSIONAL STATE [None]
  - READING DISORDER [None]
  - CEREBROVASCULAR ACCIDENT [None]
